FAERS Safety Report 11166262 (Version 1)
Quarter: 2015Q2

REPORT INFORMATION
  Report Type: Spontaneous
  Country: SE (occurrence: SE)
  Receive Date: 20150605
  Receipt Date: 20150605
  Transmission Date: 20150821
  Serious: Yes (Death, Other)
  Sender: FDA-Public Use
  Company Number: CHPA2015SE006724

PATIENT
  Age: 22 Month
  Sex: Male

DRUGS (2)
  1. ERYTHROMYCIN. [Concomitant]
     Active Substance: ERYTHROMYCIN
     Indication: RESPIRATORY SYMPTOM
     Route: 065
  2. IBUPROFEN. [Suspect]
     Active Substance: IBUPROFEN
     Indication: PYREXIA
     Dosage: UNK
     Route: 065

REACTIONS (6)
  - Hepatic failure [Fatal]
  - Seizure [Unknown]
  - Jaundice [Fatal]
  - Vomiting [Fatal]
  - Altered state of consciousness [Fatal]
  - Diarrhoea [Fatal]
